FAERS Safety Report 5446987-X (Version None)
Quarter: 2007Q3

REPORT INFORMATION
  Report Type: 
  Country: None (occurrence: None)
  Receive Date: 20070803
  Receipt Date: 20070410
  Transmission Date: 20080115
  Serious: Yes (Other)
  Sender: FDA-Public Use
  Company Number: US-JNJFOC-20070402467

PATIENT

DRUGS (1)
  1. TYLENOL (CAPLET) [Suspect]
     Indication: INTENTIONAL DRUG MISUSE
     Dosage: 30 PILLS
     Dates: start: 20070410, end: 20070410

REACTIONS (1)
  - INTENTIONAL OVERDOSE [None]
